FAERS Safety Report 7550839-9 (Version None)
Quarter: 2011Q2

REPORT INFORMATION
  Report Type: 
  Country: None (occurrence: None)
  Receive Date: 20110616
  Receipt Date: 20110613
  Transmission Date: 20111010
  Serious: No
  Sender: FDA-Public Use
  Company Number: US-PFIZER INC-2011130142

PATIENT
  Sex: Female

DRUGS (2)
  1. PREMARIN [Concomitant]
  2. DETROL LA [Suspect]
     Dosage: UNK

REACTIONS (2)
  - DRY EYE [None]
  - DRY MOUTH [None]
